FAERS Safety Report 8439104 (Version 2)
Quarter: 2013Q2

REPORT INFORMATION
  Report Type: Spontaneous
  Country: US (occurrence: None)
  Receive Date: 20120104
  Receipt Date: 20120508
  Transmission Date: 20140414
  Serious: Yes (Other)
  Sender: FDA-Public Use
  Company Number: 2011HGS-002915

PATIENT
  Age: 39 Year
  Sex: Female
  Weight: 142.88 kg

DRUGS (14)
  1. BENLYSTA [Suspect]
     Indication: SYSTEMIC LUPUS ERYTHEMATOSUS
     Dosage: 1 IN 28 DAYS
     Route: 041
     Dates: start: 20111111
  2. PLAQUENIL (HYDROXYCHLOROQUINE SULFATE)(HYDROXYCHLOROQUINE SULFATE) [Concomitant]
  3. WELLBUTRIN(BUPROPION HYDROCHLORIDE)(BUPROPION HYDROCHLORIDE) [Concomitant]
  4. XANAX [Concomitant]
  5. PREDNISONE [Concomitant]
  6. VITAMIN E(TOCOPHEROL)(TOCOPHEROL) [Concomitant]
  7. VITAMIN D(ERGOCALCIFEROL)(ERGOCALCIFEROL) [Concomitant]
  8. LYRICA (PREGABALIN) (PREGABALIN) [Concomitant]
  9. CYCLOBENZAPRINE HCL (CYCLOBENZAPRINE HYDROCHLORIDE) (CYCLOBENZAPRINE HYDROCHLORIDE) [Concomitant]
  10. VOLTAREN (DICLOFENAC) (DICLOFENAC) [Concomitant]
  11. HYDROCODONE BIT/ACETAMINOPHEN (VICODIN) (PARACETAMOL, HYDROCODONE BITARTRATE) [Concomitant]
  12. CELEBREX (CELECOXIB) (CELECOXIB) [Concomitant]
  13. TRAZODONE (TRAZODONE HYDROCHLORIDE) (TRAZODONE HYDROCHLORIDE) [Concomitant]
  14. EPIDRIN (EPIDRIN) (PARACETAMOL, DICLOFENAMIDE, ISOMETHEPTENE) [Concomitant]

REACTIONS (6)
  - SYSTEMIC LUPUS ERYTHEMATOSUS [None]
  - MUSCLE DISORDER [None]
  - ARTHROPATHY [None]
  - VISUAL IMPAIRMENT [None]
  - DISTURBANCE IN ATTENTION [None]
  - UPPER RESPIRATORY TRACT INFECTION [None]
